FAERS Safety Report 5251862-X (Version None)
Quarter: 2007Q1

REPORT INFORMATION
  Report Type: 
  Country: None (occurrence: None)
  Receive Date: 20070223
  Receipt Date: 20070202
  Transmission Date: 20070707
  Serious: Yes (Other)
  Sender: FDA-Public Use
  Company Number: 2007SP002242

PATIENT
  Age: 59 Year
  Sex: Female

DRUGS (2)
  1. PEG-INTRON [Suspect]
     Indication: HEPATITIS C
     Dosage: SC
     Route: 058
     Dates: start: 20070103, end: 20070119
  2. RIBAVIRIN [Suspect]
     Indication: HEPATITIS C
     Dosage: PO
     Route: 048
     Dates: start: 20070103, end: 20070119

REACTIONS (10)
  - ABDOMINAL DISTENSION [None]
  - DEHYDRATION [None]
  - FATIGUE [None]
  - INFLUENZA [None]
  - INJECTION SITE ERYTHEMA [None]
  - INSOMNIA [None]
  - PRURITUS [None]
  - SCAB [None]
  - SCRATCH [None]
  - VOMITING [None]
